FAERS Safety Report 7748635-2 (Version None)
Quarter: 2011Q3

REPORT INFORMATION
  Report Type: 
  Country: None (occurrence: None)
  Receive Date: 20110914
  Receipt Date: 20110907
  Transmission Date: 20111222
  Serious: No
  Sender: FDA-Public Use
  Company Number: US-BIOGENIDEC-2011BI034526

PATIENT
  Age: 39 Year
  Sex: Female

DRUGS (3)
  1. TYSABRI [Suspect]
     Indication: MULTIPLE SCLEROSIS
     Route: 042
     Dates: start: 20110329
  2. BUSPAR [Concomitant]
     Indication: ANXIETY
     Dates: start: 20110101
  3. WELLBUTRIN [Concomitant]
     Indication: PRODUCT USED FOR UNKNOWN INDICATION
     Dates: start: 20110301

REACTIONS (4)
  - PAIN IN EXTREMITY [None]
  - MUSCULAR WEAKNESS [None]
  - NAUSEA [None]
  - DIZZINESS [None]
